FAERS Safety Report 9000276 (Version 1)
Quarter: 2013Q1

REPORT INFORMATION
  Report Type: Spontaneous
  Country: MX (occurrence: MX)
  Receive Date: 20130106
  Receipt Date: 20130106
  Transmission Date: 20140127
  Serious: Yes (Death)
  Sender: FDA-Public Use
  Company Number: MX-JNJFOC-20130101776

PATIENT
  Sex: Female
  Weight: 65 kg

DRUGS (5)
  1. XARELTO [Suspect]
     Indication: EMBOLISM VENOUS
     Route: 048
     Dates: start: 2012
  2. XARELTO [Suspect]
     Indication: DEEP VEIN THROMBOSIS
     Route: 048
     Dates: start: 2012
  3. ENALAPRIL [Concomitant]
     Indication: HYPERTENSION
     Route: 048
  4. MORPHINE [Concomitant]
     Indication: BONE CANCER
     Route: 048
  5. SORAFENIB [Concomitant]
     Indication: BONE CANCER METASTATIC
     Route: 048
     Dates: start: 2012

REACTIONS (1)
  - Renal failure chronic [Fatal]
